FAERS Safety Report 6298962-3 (Version None)
Quarter: 2009Q3

REPORT INFORMATION
  Report Type: 
  Country: None (occurrence: None)
  Receive Date: 20090806
  Receipt Date: 20090802
  Transmission Date: 20100115
  Serious: Yes (Other)
  Sender: FDA-Public Use
  Company Number: BR-BAYER-200919974LA

PATIENT
  Age: 27 Year
  Sex: Female
  Weight: 65 kg

DRUGS (2)
  1. MIRANOVA [Suspect]
     Indication: CONTRACEPTION
     Dosage: NO PILL-FREE INTERVAL BETWEEN PACKAGES
     Route: 048
     Dates: start: 20090501
  2. DEPO-PROVERA [Concomitant]
     Indication: CONTRACEPTION
     Route: 030
     Dates: start: 20090501

REACTIONS (2)
  - SOMNOLENCE [None]
  - WEIGHT INCREASED [None]
